FAERS Safety Report 17296582 (Version 1)
Quarter: 2020Q1

REPORT INFORMATION
  Report Type: Report from Study
  Country: US (occurrence: US)
  Receive Date: 20200121
  Receipt Date: 20200121
  Transmission Date: 20200409
  Serious: Yes (Death, Other)
  Sender: FDA-Public Use
  Company Number: US-ASTRAZENECA-2018SE86335

PATIENT
  Age: 27971 Day
  Sex: Male
  Weight: 89.8 kg

DRUGS (6)
  1. IMFINZI [Suspect]
     Active Substance: DURVALUMAB
     Indication: LUNG NEOPLASM MALIGNANT
     Route: 042
     Dates: end: 201904
  2. OXYGEN. [Concomitant]
     Active Substance: OXYGEN
  3. IMFINZI [Suspect]
     Active Substance: DURVALUMAB
     Indication: LUNG NEOPLASM MALIGNANT
     Route: 042
     Dates: start: 20180628
  4. IMFINZI [Suspect]
     Active Substance: DURVALUMAB
     Indication: LUNG NEOPLASM MALIGNANT
     Route: 042
     Dates: start: 20180712
  5. JEVITY [Concomitant]
     Active Substance: DIETARY SUPPLEMENT
  6. ALBUTEROL. [Concomitant]
     Active Substance: ALBUTEROL
     Dosage: NEUTRALIZER ONCE A DAY

REACTIONS (18)
  - Pulmonary fibrosis [Unknown]
  - Fatigue [Unknown]
  - Candida infection [Not Recovered/Not Resolved]
  - Dyspnoea [Recovering/Resolving]
  - Sinus congestion [Unknown]
  - Cough [Not Recovered/Not Resolved]
  - Vomiting [Recovered/Resolved]
  - Sputum discoloured [Unknown]
  - Lung neoplasm [Unknown]
  - Malaise [Unknown]
  - Postoperative wound infection [Unknown]
  - Death [Fatal]
  - Scrotal abscess [Recovering/Resolving]
  - Pneumonia [Recovering/Resolving]
  - Diarrhoea [Not Recovered/Not Resolved]
  - Nausea [Recovering/Resolving]
  - Frequent bowel movements [Not Recovered/Not Resolved]
  - Cataract [Unknown]

NARRATIVE: CASE EVENT DATE: 20180629
